FAERS Safety Report 19887887 (Version 5)
Quarter: 2022Q1

REPORT INFORMATION
  Report Type: Spontaneous
  Country: IN (occurrence: IN)
  Receive Date: 20210928
  Receipt Date: 20220120
  Transmission Date: 20220423
  Serious: Yes (Hospitalization, Other)
  Sender: FDA-Public Use
  Company Number: IN-SA-2021SA315367

PATIENT
  Age: 45 Year
  Sex: Male

DRUGS (1)
  1. TRIAMCINOLONE ACETONIDE [Suspect]
     Active Substance: TRIAMCINOLONE ACETONIDE
     Indication: Scleritis
     Dosage: 4 MG INJECTION
     Route: 057

REACTIONS (10)
  - Necrotising scleritis [Recovered/Resolved]
  - Conjunctival deposit [Recovered/Resolved]
  - Conjunctival hyperaemia [Recovered/Resolved]
  - Anterior chamber flare [Recovered/Resolved]
  - Iris adhesions [Recovered/Resolved]
  - Scleral discolouration [Recovered/Resolved]
  - Cataract nuclear [Recovered/Resolved]
  - Cataract [Recovered/Resolved]
  - Condition aggravated [Recovered/Resolved]
  - Drug ineffective [Unknown]
